FAERS Safety Report 16473066 (Version 1)
Quarter: 2019Q2

REPORT INFORMATION
  Report Type: Spontaneous
  Country: US (occurrence: US)
  Receive Date: 20190514
  Receipt Date: 20190514
  Transmission Date: 20190711
  Serious: Yes (Hospitalization, Disabling, Other)
  Sender: FDA-Public Use
  Company Number: None

PATIENT

DRUGS (1)
  1. HUMIRA [Suspect]
     Active Substance: ADALIMUMAB
     Indication: CROHN^S DISEASE
     Dosage: ?          QUANTITY:3 DF DOSAGE FORM;?
     Route: 061
     Dates: start: 20190124, end: 20190124

REACTIONS (13)
  - Dyspraxia [None]
  - Paraesthesia [None]
  - Asthenia [None]
  - Fatigue [None]
  - Swelling face [None]
  - Rash [None]
  - Myalgia [None]
  - Dysphagia [None]
  - Depression [None]
  - Gait inability [None]
  - Asthenopia [None]
  - Ear disorder [None]
  - Palpitations [None]

NARRATIVE: CASE EVENT DATE: 20190124
